FAERS Safety Report 11934193 (Version 1)
Quarter: 2016Q1

REPORT INFORMATION
  Report Type: Spontaneous
  Country: US (occurrence: None)
  Receive Date: 20160120
  Receipt Date: 20160120
  Transmission Date: 20160526
  Serious: Yes (Disabling)
  Sender: FDA-Public Use
  Company Number: None

PATIENT
  Age: 46 Year
  Sex: Female
  Weight: 81.65 kg

DRUGS (3)
  1. FARXIGA [Suspect]
     Active Substance: DAPAGLIFLOZIN PROPANEDIOL
  2. METFORMIN [Concomitant]
     Active Substance: METFORMIN HYDROCHLORIDE
  3. VICTOZA [Suspect]
     Active Substance: LIRAGLUTIDE

REACTIONS (6)
  - Abasia [None]
  - Arthralgia [None]
  - Gastritis [None]
  - Inflammation [None]
  - Pain in extremity [None]
  - Multi-organ disorder [None]
